FAERS Safety Report 16576728 (Version 1)
Quarter: 2019Q3

REPORT INFORMATION
  Report Type: Spontaneous
  Country: DE (occurrence: DE)
  Receive Date: 20190716
  Receipt Date: 20190716
  Transmission Date: 20191004
  Serious: Yes (Life-Threatening, Hospitalization)
  Sender: FDA-Public Use
  Company Number: DE-TEVA-2019-DE-1077173

PATIENT
  Age: 88 Year
  Sex: Female

DRUGS (8)
  1. SIMVASTATIN. [Concomitant]
     Active Substance: SIMVASTATIN
     Dosage: 20 MG, 0-0-1-0
  2. ASS 100 [Concomitant]
     Active Substance: ASPIRIN
     Dosage: 100 MG, 0-1-0-0
  3. VIGANTOLETTEN 1000I.E. [Concomitant]
     Dosage: 1000 IE, 1-0-0-0
  4. KREON 25000 [Concomitant]
     Active Substance: PANCRELIPASE
     Dosage: 25000 IE, 1-1-1-0
  5. TORASEMID [Suspect]
     Active Substance: TORSEMIDE
     Dosage: 5 MG, 1-0-0-0
  6. PANTOPRAZOL [Concomitant]
     Active Substance: PANTOPRAZOLE SODIUM
     Dosage: 40 MG, 1-0-1-0
  7. TICAGRELOR. [Concomitant]
     Active Substance: TICAGRELOR
     Dosage: 90 MG, 1-0-1-0
  8. METOPROLOL. [Concomitant]
     Active Substance: METOPROLOL
     Dosage: 47.5 MG, 1-0-1-0

REACTIONS (3)
  - Skin turgor decreased [Unknown]
  - Dehydration [Unknown]
  - Renal impairment [Unknown]
